FAERS Safety Report 17928272 (Version 1)
Quarter: 2020Q2

REPORT INFORMATION
  Report Type: Report from Study
  Country: None (occurrence: US)
  Receive Date: 20200623
  Receipt Date: 20200623
  Transmission Date: 20200714
  Serious: Yes (Other)
  Sender: FDA-Public Use
  Company Number: US-ABBVIE-20K-163-3366133-00

PATIENT
  Sex: Female

DRUGS (2)
  1. HUMIRA [Suspect]
     Active Substance: ADALIMUMAB
     Indication: CROHN^S DISEASE
  2. HUMIRA [Suspect]
     Active Substance: ADALIMUMAB
     Indication: CROHN^S DISEASE
     Dosage: CITRATE FREE
     Route: 058

REACTIONS (11)
  - Oesophageal obstruction [Unknown]
  - Oesophagitis [Unknown]
  - Feeling abnormal [Unknown]
  - Gastric ulcer [Unknown]
  - Hypersensitivity [Unknown]
  - Asthma [Unknown]
  - Adverse food reaction [Unknown]
  - Vomiting [Unknown]
  - Weight decreased [Unknown]
  - Gastritis [Unknown]
  - Diverticulitis [Unknown]
